FAERS Safety Report 7282871-7 (Version None)
Quarter: 2011Q1

REPORT INFORMATION
  Report Type: 
  Country: None (occurrence: None)
  Receive Date: 20110128
  Receipt Date: 20110113
  Transmission Date: 20110831
  Serious: Yes (Hospitalization)
  Sender: FDA-Public Use
  Company Number: AUR-APL-2010-01944

PATIENT
  Age: 71 Year
  Sex: Female
  Weight: 96.1626 kg

DRUGS (24)
  1. CRESTOR [Concomitant]
  2. FUROSEMIDE [Concomitant]
  3. ASPIRIN [Concomitant]
  4. LISINOPRIL [Suspect]
     Dosage: 40 MG, 20 MG
     Dates: start: 20071217, end: 20100222
  5. LISINOPRIL [Suspect]
     Dosage: 40 MG, 20 MG
     Dates: start: 20100223
  6. MURO [Concomitant]
  7. POTASSIUM CHLORIDE [Concomitant]
  8. TYLENOL (CAPLET) [Concomitant]
  9. CALTRATE + VIT D [Concomitant]
  10. GARLIC [Concomitant]
  11. DICLOFENAC [Concomitant]
  12. PRAVASTATIN [Concomitant]
  13. METOPROLOL [Suspect]
     Indication: HYPERTENSION
     Dosage: 100MG, DAILY;
     Dates: start: 20050101
  14. HYDROCODONE [Concomitant]
  15. CENTRUM SILVER [Concomitant]
  16. VITAMINE E [Concomitant]
  17. ACTONEL [Concomitant]
  18. TRAVATAN [Concomitant]
  19. ASCORBIC ACID [Concomitant]
  20. CELECOXIB [Suspect]
     Indication: RHEUMATOID ARTHRITIS
     Dosage: ORAL;
     Dates: start: 20080702
  21. CELECOXIB [Suspect]
     Indication: OSTEOARTHRITIS
     Dosage: ORAL;
     Dates: start: 20080702
  22. NEXIUM [Concomitant]
  23. BRIMONIDINE TARTRATE [Concomitant]
  24. NAPROXEN [Concomitant]

REACTIONS (3)
  - SYNCOPE [None]
  - OSTEOARTHRITIS [None]
  - DYSPNOEA [None]
